FAERS Safety Report 14315265 (Version 1)
Quarter: 2017Q4

REPORT INFORMATION
  Report Type: Spontaneous
  Country: US (occurrence: US)
  Receive Date: 20171221
  Receipt Date: 20171221
  Transmission Date: 20180321
  Serious: Yes (Hospitalization, Other)
  Sender: FDA-Public Use
  Company Number: US-SAOL THERAPEUTICS-2017SAO01726

PATIENT
  Age: 69 Year
  Sex: Female

DRUGS (16)
  1. BACLOFEN. [Suspect]
     Active Substance: BACLOFEN
     Indication: POST LAMINECTOMY SYNDROME
  2. MORPHINE [Suspect]
     Active Substance: MORPHINE
     Dosage: UNK
  3. FUROSEMIDE. [Concomitant]
     Active Substance: FUROSEMIDE
  4. 25 DIFFERENT MEDICATIONS (UNSPECIFIED) [Concomitant]
  5. BACLOFEN. [Suspect]
     Active Substance: BACLOFEN
     Indication: PAIN
     Dosage: 29.53 ?G, \DAY
     Route: 037
  6. MORPHINE [Suspect]
     Active Substance: MORPHINE
     Dosage: UNK
  7. BUPIVACAINE. [Suspect]
     Active Substance: BUPIVACAINE
     Dosage: 11.18 ?G, \DAY
     Route: 037
  8. BUPIVACAINE. [Suspect]
     Active Substance: BUPIVACAINE
     Dosage: UNK
  9. BACLOFEN. [Suspect]
     Active Substance: BACLOFEN
     Indication: PAIN
     Dosage: UNK
  10. MORPHINE [Suspect]
     Active Substance: MORPHINE
     Dosage: 3.678 MG, \DAY
     Route: 037
  11. BACLOFEN. [Suspect]
     Active Substance: BACLOFEN
     Indication: POST LAMINECTOMY SYNDROME
     Dosage: UNK
  12. MORPHINE [Suspect]
     Active Substance: MORPHINE
     Dosage: 6.54 MG, \DAY
     Route: 037
  13. BACLOFEN. [Suspect]
     Active Substance: BACLOFEN
     Dosage: 16.551 ?G, \DAY
     Route: 037
  14. BUPIVACAINE. [Suspect]
     Active Substance: BUPIVACAINE
     Dosage: 6.620 MG, \DAY
     Route: 037
  15. GABAPENTIN. [Concomitant]
     Active Substance: GABAPENTIN
     Route: 048
  16. AMLODIPINE [Concomitant]
     Active Substance: AMLODIPINE BESYLATE

REACTIONS (8)
  - Blood glucose decreased [Recovered/Resolved]
  - Blood pressure decreased [Recovered/Resolved]
  - Confusional state [Unknown]
  - Lethargy [Recovered/Resolved]
  - Sedation [Unknown]
  - Somnolence [Unknown]
  - Toxicity to various agents [Recovered/Resolved]
  - Off label use [Unknown]

NARRATIVE: CASE EVENT DATE: 20171031
